FAERS Safety Report 18955228 (Version 1)
Quarter: 2021Q1

REPORT INFORMATION
  Report Type: Spontaneous
  Country: FR (occurrence: FR)
  Receive Date: 20210301
  Receipt Date: 20210301
  Transmission Date: 20210420
  Serious: Yes (Death)
  Sender: FDA-Public Use
  Company Number: FR-ROCHE-2777645

PATIENT
  Age: 47 Year
  Sex: Male

DRUGS (5)
  1. DIAZEPAM. [Suspect]
     Active Substance: DIAZEPAM
     Indication: DRUG ABUSE
     Dosage: 245 MICROG/L
     Route: 065
     Dates: start: 2020, end: 2020
  2. CODEINE [Suspect]
     Active Substance: CODEINE
     Indication: DRUG ABUSE
     Dosage: 11 MICROG/L
     Route: 065
     Dates: start: 2020, end: 2020
  3. CYAMEMAZINE [Suspect]
     Active Substance: CYAMEMAZINE
     Indication: DRUG ABUSE
     Dosage: 138 MICROG/L
     Route: 065
     Dates: start: 2020, end: 2020
  4. MORPHINE [Suspect]
     Active Substance: MORPHINE
     Indication: DRUG ABUSE
     Dosage: 97.2 MICROG/L
     Route: 065
     Dates: start: 2020, end: 2020
  5. NORDAZEPAM [Suspect]
     Active Substance: NORDAZEPAM
     Indication: DRUG ABUSE
     Dosage: 848 MICROG/L
     Route: 065
     Dates: start: 2020, end: 2020

REACTIONS (1)
  - Asphyxia [Fatal]

NARRATIVE: CASE EVENT DATE: 2020
